FAERS Safety Report 19393099 (Version 1)
Quarter: 2021Q2

REPORT INFORMATION
  Report Type: Spontaneous
  Country: US (occurrence: US)
  Receive Date: 20210608
  Receipt Date: 20210608
  Transmission Date: 20210717
  Serious: Yes (Other)
  Sender: FDA-Public Use
  Company Number: None

PATIENT
  Age: 28 Year
  Sex: Female
  Weight: 67.05 kg

DRUGS (1)
  1. CIPRO [Suspect]
     Active Substance: CIPROFLOXACIN HYDROCHLORIDE
     Dates: start: 20210530, end: 20210604

REACTIONS (5)
  - Asthenia [None]
  - Fatigue [None]
  - Pain [None]
  - Rash [None]
  - Myalgia [None]

NARRATIVE: CASE EVENT DATE: 20210607
